FAERS Safety Report 15770830 (Version 1)
Quarter: 2018Q4

REPORT INFORMATION
  Report Type: Spontaneous
  Country: US (occurrence: US)
  Receive Date: 20181207
  Receipt Date: 20181207
  Transmission Date: 20190205
  Serious: No
  Sender: FDA-Public Use
  Company Number: None

PATIENT
  Age: 48 Year
  Sex: Male

DRUGS (1)
  1. LAMOTRIGINE. [Suspect]
     Active Substance: LAMOTRIGINE
     Indication: SEIZURE
     Route: 048
     Dates: start: 20181026, end: 20181126

REACTIONS (7)
  - Hepatotoxicity [None]
  - Human rhinovirus test positive [None]
  - Drug reaction with eosinophilia and systemic symptoms [None]
  - Oedema peripheral [None]
  - Neuropathy peripheral [None]
  - Paraesthesia [None]
  - Hepatic enzyme increased [None]
